FAERS Safety Report 6219778-X (Version None)
Quarter: 2009Q2

REPORT INFORMATION
  Report Type: 
  Country: None (occurrence: None)
  Receive Date: 20090609
  Receipt Date: 20090602
  Transmission Date: 20091009
  Serious: Yes (Hospitalization)
  Sender: FDA-Public Use
  Company Number: B0564411A

PATIENT
  Sex: Female
  Weight: 48 kg

DRUGS (11)
  1. VALTREX [Suspect]
     Indication: HERPES ZOSTER
     Dosage: 1000MG THREE TIMES PER DAY
     Route: 048
     Dates: start: 20090302, end: 20090303
  2. PAXIL [Concomitant]
     Indication: DEMENTIA OF THE ALZHEIMER'S TYPE, UNCOMPLICATED
     Dosage: 30MG PER DAY
     Route: 048
  3. BENZALIN [Concomitant]
     Indication: INSOMNIA
     Dosage: 10MG PER DAY
     Route: 048
  4. RHYTHMY [Concomitant]
     Indication: INSOMNIA
     Dosage: 1MG PER DAY
     Route: 048
  5. D-SORBITOL [Concomitant]
     Indication: CONSTIPATION
     Dosage: 90ML PER DAY
     Route: 048
  6. PURSENNID [Concomitant]
     Indication: CONSTIPATION
     Dosage: 12MG PER DAY
     Route: 048
  7. OMEPRAL [Concomitant]
     Indication: GASTRITIS
     Route: 048
  8. PROMAC [Concomitant]
     Indication: GASTRITIS
     Route: 048
  9. THYRADIN S [Concomitant]
     Indication: HYPOTHYROIDISM
     Route: 048
  10. LOXONIN [Concomitant]
     Indication: HERPES ZOSTER
     Dosage: 300MG PER DAY
     Route: 048
     Dates: start: 20090302, end: 20090303
  11. METHYLCOBAL [Concomitant]
     Indication: HERPES ZOSTER
     Dosage: 1500MG PER DAY
     Route: 048
     Dates: start: 20090302, end: 20090303

REACTIONS (5)
  - ABNORMAL BEHAVIOUR [None]
  - DELIRIUM [None]
  - GASTRITIS EROSIVE [None]
  - HAEMATEMESIS [None]
  - RENAL FAILURE ACUTE [None]
